FAERS Safety Report 20664658 (Version 1)
Quarter: 2022Q2

REPORT INFORMATION
  Report Type: Spontaneous
  Country: US (occurrence: US)
  Receive Date: 20220401
  Receipt Date: 20220401
  Transmission Date: 20220721
  Serious: No
  Sender: FDA-Public Use
  Company Number: US-GLAXOSMITHKLINE-US2022AMR057940

PATIENT
  Sex: Female

DRUGS (1)
  1. BENLYSTA [Suspect]
     Active Substance: BELIMUMAB
     Indication: Lupus-like syndrome
     Dosage: 200 MG/ML, WE , ONCE WEEKLY FOR 28 DAYS
     Route: 058

REACTIONS (1)
  - Endodontic procedure [Unknown]
